FAERS Safety Report 5845822-5 (Version None)
Quarter: 2008Q3

REPORT INFORMATION
  Report Type: 
  Country: None (occurrence: None)
  Receive Date: 20080814
  Receipt Date: 20080806
  Transmission Date: 20090109
  Serious: Yes (Hospitalization, Disabling, Other)
  Sender: FDA-Public Use
  Company Number: DE-ABBOTT-08P-062-0465173-00

PATIENT
  Age: 17 Year
  Sex: Male
  Weight: 54 kg

DRUGS (5)
  1. SEVORANE LIQUID FOR INHALATION [Suspect]
     Indication: SURGERY
     Route: 055
     Dates: start: 20080703, end: 20080703
  2. SEVORANE LIQUID FOR INHALATION [Suspect]
     Indication: CLAVICLE FRACTURE
  3. SEVORANE LIQUID FOR INHALATION [Suspect]
     Indication: PSEUDARTHROSIS
  4. ANTICHOLINERGIC [Concomitant]
     Indication: PARKINSONISM
  5. LACTULOSE [Concomitant]
     Indication: DRUG USE FOR UNKNOWN INDICATION

REACTIONS (16)
  - ANAESTHETIC COMPLICATION NEUROLOGICAL [None]
  - APHASIA [None]
  - APNOEA [None]
  - BRAIN STEM SYNDROME [None]
  - COMA [None]
  - COMMUNICATION DISORDER [None]
  - DYSKINESIA [None]
  - DYSPHAGIA [None]
  - DYSTONIA [None]
  - HYPERHIDROSIS [None]
  - HYPOKINESIA [None]
  - HYPOTONIA [None]
  - LACTIC ACIDOSIS [None]
  - MUSCLE SPASTICITY [None]
  - NYSTAGMUS [None]
  - RESPIRATION ABNORMAL [None]
